FAERS Safety Report 4797690-0 (Version None)
Quarter: 2005Q3

REPORT INFORMATION
  Report Type: 
  Country: None (occurrence: None)
  Receive Date: 20050929
  Receipt Date: 20050714
  Transmission Date: 20060218
  Serious: No
  Sender: FDA-Public Use
  Company Number: 05P-163-0305788-00

PATIENT
  Age: 63 Year
  Sex: Female
  Weight: 102 kg

DRUGS (5)
  1. HUMIRA [Suspect]
     Indication: RHEUMATOID ARTHRITIS
     Dosage: 40 MG, 1 IN 2 WK, SUBCUTANEOUS
     Route: 058
     Dates: start: 20050629
  2. METHOTREXATE SODIUM [Concomitant]
  3. AMLODIPINE BESYLATE [Concomitant]
  4. QUINAPRIL [Concomitant]
  5. GLUCOSAMINE [Concomitant]

REACTIONS (1)
  - INJECTION SITE PAIN [None]
